FAERS Safety Report 6908517-2 (Version None)
Quarter: 2010Q3

REPORT INFORMATION
  Report Type: 
  Country: None (occurrence: None)
  Receive Date: 20100805
  Receipt Date: 20100727
  Transmission Date: 20110219
  Serious: Yes (Other)
  Sender: FDA-Public Use
  Company Number: US-JNJFOC-20100708434

PATIENT
  Age: 61 Year
  Sex: Female

DRUGS (2)
  1. LEVAQUIN [Suspect]
     Indication: INFECTION
     Route: 048
  2. CORTISONE [Suspect]
     Indication: PAIN IN EXTREMITY
     Route: 050

REACTIONS (5)
  - EXOSTOSIS [None]
  - EYE INJURY [None]
  - MACULAR SCAR [None]
  - PAIN IN EXTREMITY [None]
  - TENDON INJURY [None]
